FAERS Safety Report 9134815 (Version 1)
Quarter: 2013Q1

REPORT INFORMATION
  Report Type: Spontaneous
  Country: US (occurrence: US)
  Receive Date: 20130304
  Receipt Date: 20130304
  Transmission Date: 20140127
  Serious: Yes (Other)
  Sender: FDA-Public Use
  Company Number: PHEH2013US004950

PATIENT
  Age: 59 Year
  Sex: Male

DRUGS (32)
  1. GILENYA [Suspect]
     Indication: MULTIPLE SCLEROSIS
     Dosage: 0.5 MG, QD
     Route: 048
     Dates: start: 20121211, end: 20121211
  2. ALPRAZOLAM [Concomitant]
     Dosage: 0.5 MG, BID
     Route: 048
  3. AVODART [Concomitant]
     Dosage: 0.5 MG, QD
     Route: 048
  4. KLONOPIN [Concomitant]
     Dosage: 1 MG, 2 OR 3 TIMES DAILY
     Route: 048
  5. FLOMAX//TAMSULOSIN HYDROCHLORIDE [Concomitant]
     Dosage: CP 24
  6. TRIAMCINOLONE [Concomitant]
     Dosage: AS DIRECTED
  7. LIDOCAINE [Concomitant]
     Indication: MEDICAL DEVICE COMPLICATION
     Dosage: UNK, PRN
     Route: 061
  8. ASPIRIN [Concomitant]
     Dosage: 1 DF, QD
     Route: 048
  9. BUMETANIDE [Concomitant]
     Dosage: 2 MG, QD
     Route: 048
  10. LOTRISONE [Concomitant]
     Dosage: ONE APPLICATION
     Route: 061
  11. COMBIVENT [Concomitant]
     Dosage: 2 PUFFS EVERY 4-6 HOURS AS NEEDED
  12. LISINOPRIL [Concomitant]
     Dosage: 20 MG, QD
     Route: 048
  13. ALBUTEROL [Concomitant]
     Dosage: 2.5MG/3ML , 0.083%
     Route: 045
  14. PROAIR HFA [Concomitant]
     Indication: DYSPNOEA
     Dosage: 4 PUFFS AS NEEDED
  15. LIQUITEARS [Concomitant]
     Dosage: ONE DROP EACH EYE
  16. MULTAQ [Concomitant]
     Dosage: 400 MG, BID
  17. MIRALAX [Concomitant]
     Dosage: 17 MG, PRN
     Route: 048
  18. SALINE [Concomitant]
     Dosage: SPRAY IN EACH NOSTRILS
  19. TOPROL XL [Concomitant]
     Dosage: 25 MG, QD
     Route: 048
  20. LACRI-LUBE [Concomitant]
     Dosage: AT NIGHT WHEN GOING TO SLEEP
  21. HYOSCYAMINE [Concomitant]
     Indication: BLADDER SPASM
     Dosage: 0.125 MG, Q4H
     Route: 048
  22. ATROVENT [Concomitant]
     Dosage: ONE SPRAY EACH NOSTRIL, TID
     Route: 045
  23. PATANOL [Concomitant]
     Dosage: ONE DROP, BID
  24. VITAMIN B12 [Concomitant]
     Dosage: 1000 UG, UNK
     Route: 030
  25. NAPROXEN [Concomitant]
     Dosage: 500 MG, BID
     Route: 048
  26. ZANAFLEX [Concomitant]
     Indication: MUSCLE SPASTICITY
     Dosage: 4 MG,  HALF TABLET  Q8H
  27. BETASERON [Concomitant]
     Dosage: 0.625 MG, EVERY OTHER DAY FOR TWO WEEKS
     Route: 058
  28. BETASERON [Concomitant]
     Dosage: 0.125 MG, EVERY OTHER DAY  FOR TWO WEEKS
     Route: 058
  29. BETASERON [Concomitant]
     Dosage: 0.187 MG, EVERY OTHER DAY
     Route: 058
  30. BETASERON [Concomitant]
     Dosage: 0.25 MG, EVERY OTHER DAY
     Route: 058
  31. LEVAQUIN [Concomitant]
     Indication: SINUSITIS
     Dosage: 500 MG, QD
  32. FLONASE [Concomitant]
     Dosage: 500 UG, QD 2 SPRAY EACH NOSTRIL DAILY

REACTIONS (2)
  - Nodal rhythm [Recovered/Resolved]
  - Bradycardia [Recovered/Resolved]
